FAERS Safety Report 9970731 (Version 1)
Quarter: 2014Q1

REPORT INFORMATION
  Report Type: Report from Study
  Country: US (occurrence: US)
  Receive Date: 20140306
  Receipt Date: 20140306
  Transmission Date: 20141002
  Serious: No
  Sender: FDA-Public Use
  Company Number: US-ABBVIE-13P-163-1147759-00

PATIENT
  Age: 62 Year
  Sex: Male

DRUGS (13)
  1. HUMIRA [Suspect]
     Indication: CROHN^S DISEASE
     Dates: start: 201309
  2. COREG [Concomitant]
     Indication: CARDIAC FAILURE
  3. SOTALOL [Concomitant]
     Indication: CARDIAC FAILURE
  4. LISINOPRIL [Concomitant]
     Indication: CARDIAC FAILURE
  5. LISINOPRIL [Concomitant]
     Indication: HYPERTENSION
  6. ALDACTONE [Concomitant]
     Indication: CARDIAC FAILURE
  7. DIGOXIN [Concomitant]
     Indication: CARDIAC FAILURE
  8. LASIX [Concomitant]
     Indication: CARDIAC FAILURE
  9. LIALDA [Concomitant]
     Indication: CROHN^S DISEASE
  10. ASPIRIN [Concomitant]
     Indication: CARDIOVASCULAR EVENT PROPHYLAXIS
  11. XANAX [Concomitant]
     Indication: INSOMNIA
     Dosage: AT BEDTIME
  12. ZOLPIDEM [Concomitant]
     Indication: INSOMNIA
     Dosage: AT BEDTIME
  13. PROZAC [Concomitant]
     Indication: PRODUCT USED FOR UNKNOWN INDICATION

REACTIONS (3)
  - Wrong technique in drug usage process [Recovered/Resolved]
  - Injection site haemorrhage [Recovered/Resolved]
  - Injection site swelling [Recovered/Resolved]
